FAERS Safety Report 6079283-0 (Version None)
Quarter: 2009Q1

REPORT INFORMATION
  Report Type: 
  Country: None (occurrence: None)
  Receive Date: 20090216
  Receipt Date: 20080117
  Transmission Date: 20090719
  Serious: Yes (Life-Threatening, Hospitalization)
  Sender: FDA-Public Use
  Company Number: FR-PFIZER INC-2009160343

PATIENT

DRUGS (7)
  1. IRINOTECAN HCL [Suspect]
     Indication: GASTRIC CANCER
     Dosage: UNK
  2. EPIRUBICIN HCL [Suspect]
     Indication: GASTRIC CANCER
     Dosage: 50 MG/M2, CYCLE # 1
     Route: 042
     Dates: start: 20070911
  3. CISPLATIN [Suspect]
     Indication: GASTRIC CANCER
     Dosage: 60 MG/M2, CYCLE # 1
     Route: 042
     Dates: start: 20070911
  4. FOLINIC ACID [Suspect]
     Indication: GASTRIC CANCER
  5. FLUOROURACIL [Suspect]
     Indication: GASTRIC CANCER
  6. XELODA [Suspect]
     Indication: GASTRIC CANCER
     Dosage: 1000 MG/M2, UNK
     Route: 048
     Dates: start: 20070912
  7. ALUMINUM HYDROXIDE AND MAGNESIUM TRISILICATE [Concomitant]

REACTIONS (2)
  - FEBRILE BONE MARROW APLASIA [None]
  - NEUTROPENIA [None]
